FAERS Safety Report 14828244 (Version 1)
Quarter: 2018Q2

REPORT INFORMATION
  Report Type: Spontaneous
  Country: US (occurrence: US)
  Receive Date: 20180418
  Receipt Date: 20180418
  Transmission Date: 20180711
  Serious: Yes (Death)
  Sender: FDA-Public Use
  Company Number: None

PATIENT
  Age: 52 Year
  Sex: Female

DRUGS (12)
  1. VITAMIN D3 [Concomitant]
     Active Substance: CHOLECALCIFEROL
  2. BENADRYL ALLERGY [Concomitant]
     Active Substance: DIPHENHYDRAMINE HYDROCHLORIDE
  3. LASIX [Concomitant]
     Active Substance: FUROSEMIDE
  4. IMURAN [Concomitant]
     Active Substance: AZATHIOPRINE
  5. DILTIAZEM HCL ER [Concomitant]
     Active Substance: DILTIAZEM HYDROCHLORIDE
  6. SPIRONOLACTONE. [Concomitant]
     Active Substance: SPIRONOLACTONE
  7. CENTRUM [Concomitant]
     Active Substance: VITAMINS
  8. CALTRATE [Concomitant]
     Active Substance: CALCIUM CARBONATE
  9. PREDNISONE. [Concomitant]
     Active Substance: PREDNISONE
  10. SILDENAFIL. [Suspect]
     Active Substance: SILDENAFIL
     Indication: LUNG DISORDER
     Route: 048
  11. LACTRASE [Concomitant]
  12. WARFARIN SODIUM. [Concomitant]
     Active Substance: WARFARIN SODIUM

REACTIONS (1)
  - Death [None]

NARRATIVE: CASE EVENT DATE: 20180416
